FAERS Safety Report 9257959 (Version 1)
Quarter: 2013Q1

REPORT INFORMATION
  Report Type: Spontaneous
  Country: US (occurrence: None)
  Receive Date: 20121212
  Receipt Date: 20121212
  Transmission Date: 20140127
  Serious: No
  Sender: FDA-Public Use
  Company Number: 1208USA010776

PATIENT
  Sex: Male
  Weight: 66.2 kg

DRUGS (7)
  1. VICTRELIS [Suspect]
     Route: 048
  2. PEGINTRON [Suspect]
  3. RIBAPAK [Concomitant]
  4. LISINOPRIL [Concomitant]
  5. METFORMIN [Concomitant]
  6. LEVOTHYROXINE SODIUM [Concomitant]
  7. NIACIN [Concomitant]

REACTIONS (2)
  - White blood cell count decreased [None]
  - Red blood cell count decreased [None]
